FAERS Safety Report 12721921 (Version 1)
Quarter: 2016Q3

REPORT INFORMATION
  Report Type: Spontaneous
  Country: FR (occurrence: FR)
  Receive Date: 20160907
  Receipt Date: 20160907
  Transmission Date: 20161109
  Serious: Yes (Hospitalization)
  Sender: FDA-Public Use
  Company Number: FR-TEVA-654168ISR

PATIENT
  Age: 61 Year
  Sex: Female

DRUGS (34)
  1. MABTHERA [Suspect]
     Active Substance: RITUXIMAB
     Dosage: 620 MILLIGRAM DAILY; DAY 1 - FIFTH COURSE OF R-DHAOX CHEMOTHERAPY PROTOCOL
     Route: 041
     Dates: start: 20160120
  2. NEODEX [Suspect]
     Active Substance: DEXAMETHASONE\NEOMYCIN
     Indication: MANTLE CELL LYMPHOMA
     Dosage: 160 MILLIGRAM DAILY; DAY 1 TO DAY 4 -FIRST COURSE OF R-DHAOX CHEMOTHERAPY PROTOCOL
     Route: 048
     Dates: start: 20151002, end: 20151005
  3. PROPRANOLOL [Concomitant]
     Active Substance: PROPRANOLOL\PROPRANOLOL HYDROCHLORIDE
     Dosage: LONG-STANDING TREATMENT
     Route: 048
  4. OXALIPLATIN TEVA [Suspect]
     Active Substance: OXALIPLATIN
     Indication: MANTLE CELL LYMPHOMA
     Dosage: 215 MILLIGRAM DAILY; DAY1-FIRST COURSE OF R-DHAOX CHEMOTHERAPY PROTOCOL
     Route: 041
     Dates: start: 20151002
  5. OXALIPLATIN TEVA [Suspect]
     Active Substance: OXALIPLATIN
     Dosage: 215 MILLIGRAM DAILY; DAY 1 -SECOND COURSE OF R-DHAOX CHEMOTHERAPY PROTOCOL
     Route: 041
     Dates: start: 20151023
  6. OXALIPLATIN TEVA [Suspect]
     Active Substance: OXALIPLATIN
     Dosage: 215 MILLIGRAM DAILY; DAY 1 - THIRD COURSE OF R-DHAOX CHEMOTHERAPY PROTOCOL
     Route: 041
     Dates: start: 20151120
  7. CYTARABINE SANDOZ [Suspect]
     Active Substance: CYTARABINE
     Dosage: 6.6 GRAM DAILY; DAY 2 - FIFTH COURSE OF R-DHAOX CHEMOTHERAPY PROTOCOL
     Route: 041
     Dates: start: 20160121
  8. CYTARABINE SANDOZ [Suspect]
     Active Substance: CYTARABINE
     Dosage: 50 MILLIGRAM DAILY; DAY 1 -FOURTH COURSE OF R-DHAOX CHEMOTHERAPY PROTOCOL
     Route: 037
     Dates: start: 20151211
  9. NEODEX [Suspect]
     Active Substance: DEXAMETHASONE\NEOMYCIN
     Dosage: 160 MILLIGRAM DAILY; DAY 1 TO DAY 4 -THIRD COURSE OF R-DHAOX CHEMOTHERAPY PROTOCOL
     Route: 048
     Dates: start: 20151120, end: 20151123
  10. NEODEX [Suspect]
     Active Substance: DEXAMETHASONE\NEOMYCIN
     Dosage: 160 MILLIGRAM DAILY; DAY 1 TO DAY 4 -FOURTH COURSE OF R-DHAOX CHEMOTHERAPY PROTOCOL
     Route: 048
     Dates: start: 20151211, end: 20151214
  11. NEODEX [Suspect]
     Active Substance: DEXAMETHASONE\NEOMYCIN
     Dosage: 160 MILLIGRAM DAILY; DAY 1 TO DAY 4 -SIXTH COURSE OF R-DHAOX CHEMOTHERAPY PROTOCOL
     Route: 048
     Dates: start: 20160226, end: 20160229
  12. OXALIPLATIN TEVA [Suspect]
     Active Substance: OXALIPLATIN
     Dosage: 215 MILLIGRAM DAILY; DAY 1 - FOURTH COURSE OF R-DHAOX CHEMOTHERAPY PROTOCOL
     Route: 041
     Dates: start: 20151211
  13. OXALIPLATIN TEVA [Suspect]
     Active Substance: OXALIPLATIN
     Dosage: 215 MILLIGRAM DAILY; DAY 1 - SIXTH COURSE OF R-DHAOX CHEMOTHERAPY PROTOCOL
     Route: 041
     Dates: start: 20160226
  14. CYTARABINE SANDOZ [Suspect]
     Active Substance: CYTARABINE
     Dosage: 6.6 GRAM DAILY; DAY 2 - FOURTH COURSE OF R-DHAOX CHEMOTHERAPY PROTOCOL
     Route: 041
     Dates: start: 20151212
  15. CYTARABINE SANDOZ [Suspect]
     Active Substance: CYTARABINE
     Dosage: 50 MILLIGRAM DAILY; DAY 1 - FIRST COURSE OF R-DHAOX CHEMOTHERAPY PROTOCOL
     Route: 037
     Dates: start: 20151002
  16. CYTARABINE SANDOZ [Suspect]
     Active Substance: CYTARABINE
     Dosage: 50 MILLIGRAM DAILY; DAY 1 -SIXTH COURSE OF R-DHAOX CHEMOTHERAPY PROTOCOL
     Route: 037
     Dates: start: 20160226
  17. OXALIPLATIN TEVA [Suspect]
     Active Substance: OXALIPLATIN
     Dosage: 215 MILLIGRAM DAILY; DAY 1 -FIFTH COURSE OF R-DHAOX CHEMOTHERAPY PROTOCOL
     Route: 041
     Dates: start: 20160120
  18. MABTHERA [Suspect]
     Active Substance: RITUXIMAB
     Dosage: 620 MILLIGRAM DAILY; DAY 1 - FOURTH COURSE OF R-DHAOX CHEMOTHERAPY PROTOCOL
     Route: 041
     Dates: start: 20151211
  19. NEODEX [Suspect]
     Active Substance: DEXAMETHASONE\NEOMYCIN
     Dosage: 160 MILLIGRAM DAILY; DAY 1 TO DAY 4 -FIFTH COURSE OF R-DHAOX CHEMOTHERAPY PROTOCOL
     Route: 048
     Dates: start: 20160120, end: 20160123
  20. NEODEX [Suspect]
     Active Substance: DEXAMETHASONE\NEOMYCIN
     Dosage: 160 MILLIGRAM DAILY; DAY 1 TO DAY 4 -SEVENTH COURSE OF R-DHAOX CHEMOTHERAPY PROTOCOL
     Route: 048
     Dates: start: 20160324, end: 20160327
  21. MABTHERA [Suspect]
     Active Substance: RITUXIMAB
     Indication: MANTLE CELL LYMPHOMA
     Dosage: 620 MILLIGRAM DAILY; DAY 1 -FIRST COURSE OF R-DHAOX CHEMOTHERAPY PROTOCOL
     Route: 041
     Dates: start: 20151002
  22. CYTARABINE SANDOZ [Suspect]
     Active Substance: CYTARABINE
     Indication: MANTLE CELL LYMPHOMA
     Dosage: 6.6 GRAM DAILY; DAY 2 - FIRST COURSE OF R-DHAOX CHEMOTHERAPY PROTOCOL
     Route: 041
     Dates: start: 20151003
  23. CYTARABINE SANDOZ [Suspect]
     Active Substance: CYTARABINE
     Dosage: 6.6 GRAM DAILY; DAY 2 - SIXTH COURSE OF R-DHAOX CHEMOTHERAPY PROTOCOL
     Route: 041
     Dates: start: 20160227
  24. NEODEX [Suspect]
     Active Substance: DEXAMETHASONE\NEOMYCIN
     Dosage: 160 MILLIGRAM DAILY; DAY 1 TO DAY 4 -SECOND COURSE OF R-DHAOX CHEMOTHERAPY PROTOCOL
     Route: 048
     Dates: start: 20151023, end: 20151026
  25. STILNOX 10 MG [Concomitant]
     Active Substance: ZOLPIDEM\ZOLPIDEM TARTRATE
     Dosage: LONG-STANDING TREATMENT
     Route: 048
  26. CYTARABINE SANDOZ [Suspect]
     Active Substance: CYTARABINE
     Dosage: 6.6 GRAM DAILY; DAY 2 - SECOND COURSE OF R-DHAOX CHEMOTHERAPY PROTOCOL
     Route: 041
     Dates: start: 20151024
  27. CYTARABINE SANDOZ [Suspect]
     Active Substance: CYTARABINE
     Dosage: 6.6 GRAM DAILY; DAY 2 - THIRD COURSE OF R-DHAOX CHEMOTHERAPY PROTOCOL
     Route: 041
     Dates: start: 20151121
  28. MABTHERA [Suspect]
     Active Substance: RITUXIMAB
     Dosage: 620 MILLIGRAM DAILY; DAY 1 -SECOND COURSE OF R-DHAOX CHEMOTHERAPY PROTOCOL
     Route: 041
     Dates: start: 20151023
  29. MABTHERA [Suspect]
     Active Substance: RITUXIMAB
     Dosage: 620 MILLIGRAM DAILY; DAY 1 - THIRD COURSE OF R-DHAOX CHEMOTHERAPY PROTOCOL
     Route: 041
     Dates: start: 20151120
  30. MABTHERA [Suspect]
     Active Substance: RITUXIMAB
     Dosage: 620 MILLIGRAM DAILY; DAY 1 - SIXTH COURSE OF R-DHAOX CHEMOTHERAPY PROTOCOL
     Route: 041
     Dates: start: 20160226
  31. CYTARABINE SANDOZ [Suspect]
     Active Substance: CYTARABINE
     Dosage: 50 MILLIGRAM DAILY; DAY 1 -SECOND COURSE OF R-DHAOX CHEMOTHERAPY PROTOCOL
     Route: 037
     Dates: start: 20151023
  32. CYTARABINE SANDOZ [Suspect]
     Active Substance: CYTARABINE
     Dosage: 50 MILLIGRAM DAILY; DAY 1 -THIRD COURSE OF R-DHAOX CHEMOTHERAPY PROTOCOL
     Route: 037
     Dates: start: 20151120
  33. CYTARABINE SANDOZ [Suspect]
     Active Substance: CYTARABINE
     Dosage: 50 MILLIGRAM DAILY; DAY 1 -FIFTH COURSE OF R-DHAOX CHEMOTHERAPY PROTOCOL
     Route: 037
     Dates: start: 20160120
  34. CYTARABINE SANDOZ [Suspect]
     Active Substance: CYTARABINE
     Dosage: 50 MILLIGRAM DAILY; SEVENTH COURSE OF R-DHAOX CHEMOTHERAPY PROTOCOL
     Route: 037
     Dates: start: 20160324

REACTIONS (1)
  - Loss of consciousness [Not Recovered/Not Resolved]

NARRATIVE: CASE EVENT DATE: 201602
